FAERS Safety Report 5912988-8 (Version None)
Quarter: 2008Q4

REPORT INFORMATION
  Report Type: 
  Country: None (occurrence: None)
  Receive Date: 20081002
  Receipt Date: 20080912
  Transmission Date: 20090506
  Serious: Yes (Hospitalization)
  Sender: FDA-Public Use
  Company Number: US024615

PATIENT
  Age: 84 Year
  Sex: Male
  Weight: 91 kg

DRUGS (9)
  1. BENDAMUSTINE [Suspect]
     Indication: NON-HODGKIN'S LYMPHOMA
     Dosage: 182 MG DAYS 1 AND 4, Q 28 DAYS INTRAVENOUS
     Route: 042
     Dates: start: 20080715, end: 20080821
  2. RITUXAN [Concomitant]
  3. VELCADE [Concomitant]
  4. NORVASC [Concomitant]
  5. LISINOPRIL [Concomitant]
  6. ZOCOR [Concomitant]
  7. RYTHMOL [Concomitant]
  8. LOPRESSOR [Concomitant]
  9. COUMADIN [Concomitant]

REACTIONS (16)
  - ACUTE RESPIRATORY FAILURE [None]
  - ADRENAL ADENOMA [None]
  - ANAEMIA [None]
  - ARTERIOSCLEROSIS CORONARY ARTERY [None]
  - ATELECTASIS [None]
  - CARDIAC FAILURE CONGESTIVE [None]
  - CONSTIPATION [None]
  - DIVERTICULUM [None]
  - HYPOTENSION [None]
  - INTERNATIONAL NORMALISED RATIO INCREASED [None]
  - PLEURAL EFFUSION [None]
  - PNEUMONITIS [None]
  - PNEUMOTHORAX [None]
  - PULMONARY OEDEMA [None]
  - RENAL CYST [None]
  - THROMBOCYTOPENIA [None]
